FAERS Safety Report 6890074-0 (Version None)
Quarter: 2010Q3

REPORT INFORMATION
  Report Type: 
  Country: None (occurrence: None)
  Receive Date: 20100730
  Receipt Date: 20080714
  Transmission Date: 20110219
  Serious: Yes (Other)
  Sender: FDA-Public Use
  Company Number: US-PFIZER INC-2008039665

PATIENT
  Sex: Male
  Weight: 70.8 kg

DRUGS (4)
  1. LIPITOR [Suspect]
     Indication: HYPERLIPIDAEMIA
     Route: 048
     Dates: start: 20070523, end: 20080412
  2. ADVAIR DISKUS 100/50 [Concomitant]
     Dosage: 1 PUFF,TWICE DAILY
  3. FLONASE [Concomitant]
     Route: 045
  4. ALBUTEROL [Concomitant]

REACTIONS (3)
  - BLOOD CREATINE PHOSPHOKINASE INCREASED [None]
  - MYALGIA [None]
  - RHABDOMYOLYSIS [None]
